FAERS Safety Report 11081395 (Version 1)
Quarter: 2015Q2

REPORT INFORMATION
  Report Type: Spontaneous
  Country: US (occurrence: US)
  Receive Date: 20150501
  Receipt Date: 20150501
  Transmission Date: 20150821
  Serious: No
  Sender: FDA-Public Use
  Company Number: US-ABBVIE-14P-163-1297688-00

PATIENT
  Age: 74 Year
  Sex: Male
  Weight: 83.99 kg

DRUGS (7)
  1. CREON [Suspect]
     Active Substance: PANCRELIPASE AMYLASE\PANCRELIPASE LIPASE\PANCRELIPASE PROTEASE
     Indication: PANCREATIC INSUFFICIENCY
     Dosage: ONE WITH EACH MEAL
     Route: 048
     Dates: start: 201410
  2. WARFARIN [Concomitant]
     Active Substance: WARFARIN
     Indication: CORONARY ARTERIAL STENT INSERTION
  3. METOPROLOL [Concomitant]
     Active Substance: METOPROLOL
     Indication: HYPERTENSION
  4. HYDROCHLOROTHIAZIDE. [Concomitant]
     Active Substance: HYDROCHLOROTHIAZIDE
     Indication: FLUID RETENTION
  5. QUINIDINE [Concomitant]
     Active Substance: QUINIDINE
     Indication: HYPERTENSION
  6. LOVASTATIN. [Concomitant]
     Active Substance: LOVASTATIN
     Indication: BLOOD CHOLESTEROL INCREASED
  7. SEROQUEL [Concomitant]
     Active Substance: QUETIAPINE FUMARATE
     Indication: SLEEP DISORDER

REACTIONS (1)
  - Pollakiuria [Not Recovered/Not Resolved]

NARRATIVE: CASE EVENT DATE: 201410
